FAERS Safety Report 25863506 (Version 1)
Quarter: 2025Q3

REPORT INFORMATION
  Report Type: Report from Study
  Country: EU (occurrence: EU)
  Receive Date: 20250930
  Receipt Date: 20250930
  Transmission Date: 20251020
  Serious: Yes (Death, Other)
  Sender: JOHNSON AND JOHNSON
  Company Number: EU-JNJFOC-20250932030

PATIENT
  Sex: Female

DRUGS (4)
  1. TOLODODEKIN ALFA [Suspect]
     Active Substance: TOLODODEKIN ALFA
     Indication: Plasma cell myeloma
     Route: 065
  2. IBERDOMIDE [Suspect]
     Active Substance: IBERDOMIDE
     Indication: Plasma cell myeloma
     Route: 048
  3. IBERDOMIDE [Suspect]
     Active Substance: IBERDOMIDE
     Route: 048
  4. DEXAMETHASONE [Suspect]
     Active Substance: DEXAMETHASONE
     Indication: Plasma cell myeloma
     Route: 065

REACTIONS (10)
  - Biliary sepsis [Fatal]
  - Epilepsy [Fatal]
  - Pneumonia [Fatal]
  - Neutropenia [Unknown]
  - Febrile neutropenia [Unknown]
  - Respiratory tract infection [Unknown]
  - Rash [Unknown]
  - Fatigue [Unknown]
  - Infection [Unknown]
  - Intentional product use issue [Unknown]
